FAERS Safety Report 25915833 (Version 2)
Quarter: 2025Q4

REPORT INFORMATION
  Report Type: Spontaneous
  Country: US (occurrence: US)
  Receive Date: 20251013
  Receipt Date: 20251107
  Transmission Date: 20260118
  Serious: No
  Sender: GLAXOSMITHKLINE
  Company Number: US-GSK-US2025AMR121361

PATIENT
  Sex: Male

DRUGS (1)
  1. ALBUTEROL SULFATE [Suspect]
     Active Substance: ALBUTEROL SULFATE
     Indication: Product used for unknown indication
     Dosage: UNK, 18G/200 METERED

REACTIONS (4)
  - Wrong technique in device usage process [Unknown]
  - Product dose omission issue [Unknown]
  - Poor quality product administered [Unknown]
  - Product complaint [Unknown]
